FAERS Safety Report 18668516 (Version 1)
Quarter: 2020Q4

REPORT INFORMATION
  Report Type: Spontaneous
  Country: CA (occurrence: CA)
  Receive Date: 20201226
  Receipt Date: 20201226
  Transmission Date: 20210114
  Serious: Yes (Disabling)
  Sender: FDA-Public Use
  Company Number: None

PATIENT
  Age: 29 Year
  Sex: Female
  Weight: 56.25 kg

DRUGS (1)
  1. PROHANCE [Suspect]
     Active Substance: GADOTERIDOL
     Indication: SCAN WITH CONTRAST
     Route: 042
     Dates: start: 20200611, end: 20200611

REACTIONS (8)
  - Tinnitus [None]
  - Visual impairment [None]
  - Fatigue [None]
  - Dizziness [None]
  - Headache [None]
  - Hypoaesthesia [None]
  - Vitreous floaters [None]
  - Hypoacusis [None]

NARRATIVE: CASE EVENT DATE: 20200611
